FAERS Safety Report 4643822-4 (Version None)
Quarter: 2005Q2

REPORT INFORMATION
  Report Type: 
  Country: None (occurrence: None)
  Receive Date: 20050422
  Receipt Date: 20050422
  Transmission Date: 20051028
  Serious: Yes (Other)
  Sender: FDA-Public Use
  Company Number: None

PATIENT
  Age: 66 Year
  Sex: Male
  Weight: 85.7 kg

DRUGS (4)
  1. TERAZOSIN [Suspect]
  2. BUSPIRONE HCL [Concomitant]
  3. TRAZODONE HCL [Concomitant]
  4. SYNTHROID [Concomitant]

REACTIONS (1)
  - TACHYCARDIA [None]
